FAERS Safety Report 17956149 (Version 2)
Quarter: 2020Q3

REPORT INFORMATION
  Report Type: Spontaneous
  Country: US (occurrence: US)
  Receive Date: 20200629
  Receipt Date: 20200730
  Transmission Date: 20201103
  Serious: No
  Sender: FDA-Public Use
  Company Number: US-PFIZER INC-2020248637

PATIENT
  Age: 41 Year
  Sex: Female

DRUGS (1)
  1. XELJANZ XR [Suspect]
     Active Substance: TOFACITINIB CITRATE
     Indication: RHEUMATOID ARTHRITIS
     Dosage: 11 MG, DAILY
     Route: 048
     Dates: start: 20200612, end: 20200707

REACTIONS (3)
  - Malaise [Unknown]
  - Product dose omission in error [Unknown]
  - Depressed mood [Unknown]

NARRATIVE: CASE EVENT DATE: 2020
